FAERS Safety Report 23402127 (Version 1)
Quarter: 2024Q1

REPORT INFORMATION
  Report Type: Spontaneous
  Country: AU (occurrence: AU)
  Receive Date: 20240115
  Receipt Date: 20240115
  Transmission Date: 20240410
  Serious: Yes (Other)
  Sender: FDA-Public Use
  Company Number: AU-AMGEN-AUSSP2024006606

PATIENT
  Age: 63 Year
  Sex: Male

DRUGS (21)
  1. FILGRASTIM [Suspect]
     Active Substance: FILGRASTIM
     Indication: Burkitt^s lymphoma refractory
     Dosage: UNK
     Route: 065
  2. RITUXIMAB [Suspect]
     Active Substance: RITUXIMAB
     Indication: Burkitt^s lymphoma refractory
     Dosage: UNK
     Route: 065
     Dates: start: 20220912, end: 20221212
  3. RITUXIMAB [Suspect]
     Active Substance: RITUXIMAB
     Dosage: UNK
     Route: 065
     Dates: start: 20230127, end: 20230220
  4. ETOPOSIDE [Suspect]
     Active Substance: ETOPOSIDE
     Indication: Burkitt^s lymphoma refractory
     Dosage: UNK
     Route: 065
     Dates: start: 20220912, end: 20221212
  5. ETOPOSIDE [Suspect]
     Active Substance: ETOPOSIDE
     Dosage: UNK
     Route: 065
     Dates: start: 20230127, end: 20230220
  6. PREDNISONE [Suspect]
     Active Substance: PREDNISONE
     Indication: Burkitt^s lymphoma refractory
     Dosage: UNK
     Route: 065
     Dates: start: 20220912, end: 20221212
  7. VINCRISTINE [Suspect]
     Active Substance: VINCRISTINE
     Indication: Burkitt^s lymphoma refractory
     Dosage: UNK
     Route: 065
     Dates: start: 20220912, end: 20221212
  8. VINCRISTINE [Suspect]
     Active Substance: VINCRISTINE
     Dosage: UNK
     Route: 065
     Dates: start: 20221231, end: 20230121
  9. CYCLOPHOSPHAMIDE [Suspect]
     Active Substance: CYCLOPHOSPHAMIDE
     Indication: Burkitt^s lymphoma refractory
     Dosage: UNK
     Route: 065
     Dates: start: 20220912, end: 20221212
  10. CYCLOPHOSPHAMIDE [Suspect]
     Active Substance: CYCLOPHOSPHAMIDE
     Dosage: UNK
     Route: 065
     Dates: start: 20221231, end: 20230121
  11. DOXORUBICIN [Suspect]
     Active Substance: DOXORUBICIN
     Indication: Burkitt^s lymphoma refractory
     Dosage: UNK
     Route: 065
     Dates: start: 20220912, end: 20221212
  12. DOXORUBICIN [Suspect]
     Active Substance: DOXORUBICIN
     Dosage: UNK
     Route: 065
     Dates: start: 20221231, end: 20230121
  13. DEXAMETHASONE [Suspect]
     Active Substance: DEXAMETHASONE
     Indication: Burkitt^s lymphoma refractory
     Dosage: UNK
     Route: 065
     Dates: start: 20221231, end: 20230121
  14. CARBOPLATIN [Suspect]
     Active Substance: CARBOPLATIN
     Indication: Product used for unknown indication
     Dosage: UNK
     Route: 065
     Dates: start: 20230127, end: 20230220
  15. IFOSFAMIDE [Suspect]
     Active Substance: IFOSFAMIDE
     Indication: Product used for unknown indication
     Dosage: UNK
     Route: 065
     Dates: start: 20230127, end: 20230220
  16. CYTARABINE [Suspect]
     Active Substance: CYTARABINE
     Indication: Burkitt^s lymphoma refractory
     Dosage: UNK
     Route: 065
     Dates: start: 20221231, end: 20230121
  17. METHOTREXATE [Suspect]
     Active Substance: METHOTREXATE
     Indication: Burkitt^s lymphoma refractory
     Dosage: UNK
     Route: 065
     Dates: start: 20221231, end: 20230121
  18. VALTREX [Concomitant]
     Active Substance: VALACYCLOVIR HYDROCHLORIDE
     Indication: Product used for unknown indication
     Dosage: 500 MILLIGRAM, INTERVAL: 1 DAY
     Route: 065
  19. BACTRIM [Concomitant]
     Active Substance: SULFAMETHOXAZOLE\TRIMETHOPRIM
     Indication: Product used for unknown indication
     Dosage: UNK
     Route: 065
  20. ENTECAVIR [Concomitant]
     Active Substance: ENTECAVIR
     Indication: Product used for unknown indication
     Dosage: 0.5 MILLIGRAM, INTERVAL: 1
     Route: 065
  21. PANTOPRAZOLE [Concomitant]
     Active Substance: PANTOPRAZOLE
     Indication: Product used for unknown indication
     Dosage: 40 MILLIGRAM, INTERVAL: 1
     Route: 065

REACTIONS (3)
  - Burkitt^s lymphoma refractory [Unknown]
  - Disease progression [Unknown]
  - Necrosis [Unknown]
